FAERS Safety Report 21336619 (Version 1)
Quarter: 2022Q3

REPORT INFORMATION
  Report Type: Spontaneous
  Country: US (occurrence: US)
  Receive Date: 20220915
  Receipt Date: 20220915
  Transmission Date: 20221027
  Serious: Yes (Hospitalization, Other)
  Sender: FDA-Public Use
  Company Number: US-MLMSERVICE-20220829-3763603-1

PATIENT
  Age: 19 Year
  Sex: Male

DRUGS (2)
  1. METHYLPHENIDATE HYDROCHLORIDE [Suspect]
     Active Substance: METHYLPHENIDATE HYDROCHLORIDE
     Indication: Attention deficit hyperactivity disorder
  2. CLONAZEPAM [Concomitant]
     Active Substance: CLONAZEPAM
     Indication: Tourette^s disorder

REACTIONS (1)
  - Tourette^s disorder [Recovering/Resolving]
